FAERS Safety Report 7761906-9 (Version None)
Quarter: 2011Q3

REPORT INFORMATION
  Report Type: 
  Country: None (occurrence: None)
  Receive Date: 20110920
  Receipt Date: 20110908
  Transmission Date: 20111222
  Serious: Yes (Hospitalization)
  Sender: FDA-Public Use
  Company Number: NP-ELI_LILLY_AND_COMPANY-NP201109002492

PATIENT
  Age: 68 Year
  Sex: Male

DRUGS (1)
  1. ALIMTA [Suspect]
     Indication: PLEURAL MESOTHELIOMA MALIGNANT
     Dosage: 700 MG, UNK
     Route: 042

REACTIONS (1)
  - CHEST PAIN [None]
